FAERS Safety Report 4926911-6 (Version None)
Quarter: 2006Q1

REPORT INFORMATION
  Report Type: 
  Country: None (occurrence: None)
  Receive Date: 20060228
  Receipt Date: 20050908
  Transmission Date: 20060701
  Serious: No
  Sender: FDA-Public Use
  Company Number: US-GLAXOSMITHKLINE-A0573481A

PATIENT
  Age: 54 Year
  Sex: Male

DRUGS (13)
  1. LAMICTAL [Suspect]
     Indication: DEPRESSION
     Dosage: 200MG PER DAY
     Route: 048
     Dates: start: 20050701
  2. XANAX [Concomitant]
  3. OXYCONTIN [Concomitant]
  4. PERCOCET [Concomitant]
     Route: 065
  5. LEXAPRO [Concomitant]
  6. TESTOSTERONE [Concomitant]
  7. GROWTH HORMONE [Concomitant]
  8. DOXYCYCLINE [Concomitant]
  9. TETRACYCLINE [Concomitant]
  10. TUMS [Concomitant]
  11. ROLAIDS [Concomitant]
  12. PREVACID [Concomitant]
  13. SODIUM BICARBONATE [Concomitant]

REACTIONS (2)
  - DYSPEPSIA [None]
  - GASTRIC DISORDER [None]
